FAERS Safety Report 18196629 (Version 1)
Quarter: 2020Q3

REPORT INFORMATION
  Report Type: Spontaneous
  Country: US (occurrence: US)
  Receive Date: 20200825
  Receipt Date: 20200825
  Transmission Date: 20201103
  Serious: Yes (Hospitalization)
  Sender: FDA-Public Use
  Company Number: None

PATIENT
  Age: 69 Year
  Sex: Male

DRUGS (1)
  1. DEXAMETHASONE 4MG HIKMA [Suspect]
     Active Substance: DEXAMETHASONE
     Indication: PLASMA CELL MYELOMA
     Dosage: OTHER FREQUENCY:3 TO 4 TIMES WEEK;?
     Route: 048
     Dates: start: 20190318

REACTIONS (2)
  - Pyrexia [None]
  - Kidney infection [None]

NARRATIVE: CASE EVENT DATE: 20200817
